FAERS Safety Report 19400661 (Version 1)
Quarter: 2021Q2

REPORT INFORMATION
  Report Type: Spontaneous
  Country: US (occurrence: US)
  Receive Date: 20210610
  Receipt Date: 20210610
  Transmission Date: 20210717
  Serious: Yes (Other)
  Sender: FDA-Public Use
  Company Number: US-AMERICAN REGENT INC-2021001481

PATIENT
  Age: 41 Year
  Sex: Female

DRUGS (21)
  1. ACYCLOVIR                          /00587301/ [Concomitant]
     Active Substance: ACYCLOVIR
     Indication: NECROTISING SOFT TISSUE INFECTION
     Dosage: UNK
     Route: 065
  2. FLUCONAZOLE. [Concomitant]
     Active Substance: FLUCONAZOLE
     Indication: NECROTISING SOFT TISSUE INFECTION
     Dosage: UNK
     Route: 065
  3. EPINEPHRINE INJECTION, USP (0517?1071?01) [Suspect]
     Active Substance: EPINEPHRINE
     Indication: HYPOTENSION
     Dosage: 0.5 MCG/KG/MIN (MAXIUMUM DOSE)
     Route: 042
  4. EPINEPHRINE INJECTION, USP (0517?1071?01) [Suspect]
     Active Substance: EPINEPHRINE
     Indication: TOXIC SHOCK SYNDROME
  5. NOREPINEPHRINE. [Suspect]
     Active Substance: NOREPINEPHRINE
     Indication: HYPOTENSION
     Dosage: 0.3 MCG/KG/MIN (MAXIUMUM DOSE)
     Route: 042
  6. CLINDAMYCIN. [Concomitant]
     Active Substance: CLINDAMYCIN
     Indication: MENINGITIS
  7. FLUCONAZOLE. [Concomitant]
     Active Substance: FLUCONAZOLE
     Indication: MENINGITIS
  8. DOPAMINE HCL INJECTION, USP (1305?25) [Suspect]
     Active Substance: DOPAMINE HYDROCHLORIDE
     Indication: TOXIC SHOCK SYNDROME
  9. CEFEPIME [Concomitant]
     Active Substance: CEFEPIME HYDROCHLORIDE
     Indication: NECROTISING SOFT TISSUE INFECTION
  10. CLINDAMYCIN. [Concomitant]
     Active Substance: CLINDAMYCIN
     Indication: NECROTISING SOFT TISSUE INFECTION
     Dosage: UNK
     Route: 065
  11. DOPAMINE HCL INJECTION, USP (1305?25) [Suspect]
     Active Substance: DOPAMINE HYDROCHLORIDE
     Indication: HYPOTENSION
     Dosage: 2.5 MCG/KG/MIN (MAXIUMUM DOSE)
     Route: 042
  12. VASOPRESSIN INJECTION, USP [Suspect]
     Active Substance: VASOPRESSIN
     Indication: HYPOTENSION
     Dosage: 0.04 UNITS/MIN (MAXIUMUM DOSE)
     Route: 042
  13. VASOPRESSIN INJECTION, USP [Suspect]
     Active Substance: VASOPRESSIN
     Indication: TOXIC SHOCK SYNDROME
  14. NOREPINEPHRINE. [Suspect]
     Active Substance: NOREPINEPHRINE
     Indication: TOXIC SHOCK SYNDROME
  15. VANCOMYCIN [Concomitant]
     Active Substance: VANCOMYCIN
     Indication: NECROTISING SOFT TISSUE INFECTION
  16. ACYCLOVIR                          /00587301/ [Concomitant]
     Active Substance: ACYCLOVIR
     Indication: MENINGITIS
  17. AMPICILLIN [Concomitant]
     Active Substance: AMPICILLIN
     Indication: NECROTISING SOFT TISSUE INFECTION
     Dosage: UNK
     Route: 065
  18. AMPICILLIN [Concomitant]
     Active Substance: AMPICILLIN
     Indication: MENINGITIS
  19. ANGIOTENSIN II [Suspect]
     Active Substance: ANGIOTENSIN II
     Indication: TOXIC SHOCK SYNDROME
     Dosage: 40 NG/KG/MIN (MAXIMUM DOSE)
     Route: 042
  20. VANCOMYCIN [Concomitant]
     Active Substance: VANCOMYCIN
     Indication: MENINGITIS
     Dosage: UNK
     Route: 065
  21. CEFEPIME [Concomitant]
     Active Substance: CEFEPIME HYDROCHLORIDE
     Indication: MENINGITIS
     Dosage: UNK
     Route: 065

REACTIONS (6)
  - Hypotension [Recovered/Resolved]
  - Deep vein thrombosis [Recovered/Resolved]
  - Peripheral ischaemia [Not Recovered/Not Resolved]
  - Drug ineffective [Recovered/Resolved]
  - Splenic infarction [Recovered/Resolved]
  - Renal infarct [Recovered/Resolved]
